FAERS Safety Report 6150185-4 (Version None)
Quarter: 2009Q2

REPORT INFORMATION
  Report Type: 
  Country: None (occurrence: None)
  Receive Date: 20090408
  Receipt Date: 20090408
  Transmission Date: 20091009
  Serious: Yes (Other)
  Sender: FDA-Public Use
  Company Number: None

PATIENT
  Sex: Female
  Weight: 158 kg

DRUGS (1)
  1. PEG-ASPARAGINASE [Suspect]
     Indication: ACUTE LYMPHOCYTIC LEUKAEMIA
     Dosage: 1650 UNITS X1 IM
     Route: 030
     Dates: start: 20090212

REACTIONS (4)
  - DISCOMFORT [None]
  - PRURITUS [None]
  - RASH [None]
  - URTICARIA [None]
